FAERS Safety Report 19908079 (Version 3)
Quarter: 2022Q3

REPORT INFORMATION
  Report Type: Spontaneous
  Country: CA (occurrence: CA)
  Receive Date: 20211001
  Receipt Date: 20220915
  Transmission Date: 20221027
  Serious: Yes (Death, Other)
  Sender: FDA-Public Use
  Company Number: CA-SAMSUNG BIOEPIS-SB-2021-22992

PATIENT
  Age: 63 Year
  Sex: Male
  Weight: 108 kg

DRUGS (3)
  1. INFLIXIMAB [Suspect]
     Active Substance: INFLIXIMAB
     Indication: Pyoderma gangrenosum
     Route: 042
  2. ACETAMINOPHEN [Concomitant]
     Active Substance: ACETAMINOPHEN
     Indication: Premedication
     Route: 065
  3. DIPHENHYDRAMINE [Concomitant]
     Active Substance: DIPHENHYDRAMINE
     Indication: Premedication
     Route: 065

REACTIONS (16)
  - Death [Fatal]
  - Body temperature decreased [Fatal]
  - Cellulitis [Fatal]
  - Contusion [Fatal]
  - Decreased appetite [Fatal]
  - Dysuria [Fatal]
  - Fatigue [Fatal]
  - Impaired healing [Fatal]
  - Weight decreased [Fatal]
  - Wound [Fatal]
  - Dyspnoea [Fatal]
  - Oxygen saturation decreased [Fatal]
  - Spinal pain [Fatal]
  - Inappropriate schedule of product administration [Fatal]
  - Off label use [Fatal]
  - Product use in unapproved indication [Unknown]
